FAERS Safety Report 6331394-8 (Version None)
Quarter: 2009Q3

REPORT INFORMATION
  Report Type: 
  Country: None (occurrence: None)
  Receive Date: 20090827
  Receipt Date: 20090821
  Transmission Date: 20100115
  Serious: Yes (Hospitalization)
  Sender: FDA-Public Use
  Company Number: US-ABBOTT-08P-163-0472565-00

PATIENT
  Sex: Female
  Weight: 76.272 kg

DRUGS (24)
  1. HUMIRA [Suspect]
     Indication: RHEUMATOID ARTHRITIS
     Route: 058
     Dates: start: 20061002
  2. HUMIRA [Suspect]
  3. METHOTREXATE SODIUM [Concomitant]
     Indication: RHEUMATOID ARTHRITIS
     Route: 048
     Dates: start: 19910101
  4. ACIPHEX [Concomitant]
     Indication: DYSPEPSIA
     Route: 048
  5. AMITIZA [Concomitant]
     Indication: CONSTIPATION
     Route: 048
  6. GETRA LA [Concomitant]
     Indication: URINARY TRACT DISORDER
     Route: 048
     Dates: start: 20080401
  7. FEXOFENADINE [Concomitant]
     Indication: HYPERSENSITIVITY
     Route: 048
     Dates: start: 20080401
  8. FOLIC ACID [Concomitant]
     Indication: VITAMIN SUPPLEMENTATION
     Route: 048
     Dates: start: 19810101
  9. LIDODERM [Concomitant]
     Indication: PAIN
     Route: 061
     Dates: start: 20050101
  10. LODINE [Concomitant]
     Indication: PAIN
     Route: 048
  11. NORVASC [Concomitant]
     Indication: CARDIOMEGALY
     Route: 048
  12. NORVASC [Concomitant]
     Indication: BLOOD PRESSURE MANAGEMENT
  13. PREMARIN [Concomitant]
     Indication: HYSTERECTOMY
     Route: 048
  14. PREMARIN [Concomitant]
     Indication: HOT FLUSH
     Route: 048
  15. ROBAXIN [Concomitant]
     Indication: PAIN
     Route: 048
  16. WYGESIC [Concomitant]
     Indication: PAIN
     Route: 048
  17. MEGA MULTIVITAMINS [Concomitant]
     Indication: VITAMIN SUPPLEMENTATION
     Route: 048
  18. ASPIRIN [Concomitant]
     Indication: PROPHYLAXIS
     Route: 048
  19. CALTRATE WITH VITAMIN D [Concomitant]
     Indication: VITAMIN SUPPLEMENTATION
     Route: 048
  20. FISH OIL [Concomitant]
     Indication: MEDICAL DIET
     Route: 048
  21. L-LYSINE [Concomitant]
     Indication: MEDICAL DIET
     Route: 048
  22. L-LYSINE [Concomitant]
     Indication: ORAL HERPES
  23. ASCORBIC ACID [Concomitant]
     Indication: VITAMIN SUPPLEMENTATION
     Route: 048
  24. DETROL LA [Concomitant]
     Indication: NOCTURIA
     Route: 048

REACTIONS (9)
  - ARTHRALGIA [None]
  - BACK PAIN [None]
  - HERNIA [None]
  - INCORRECT DOSE ADMINISTERED [None]
  - INJECTION SITE EXTRAVASATION [None]
  - INJECTION SITE HAEMORRHAGE [None]
  - MUSCULOSKELETAL PAIN [None]
  - NECK PAIN [None]
  - SKIN DISORDER [None]
